FAERS Safety Report 15369990 (Version 3)
Quarter: 2018Q4

REPORT INFORMATION
  Report Type: Spontaneous
  Country: US (occurrence: US)
  Receive Date: 20180911
  Receipt Date: 20181130
  Transmission Date: 20190204
  Serious: Yes (Other)
  Sender: FDA-Public Use
  Company Number: US-AUROBINDO-AUR-APU-2018-044158

PATIENT
  Sex: Male
  Weight: 87.08 kg

DRUGS (1)
  1. CLOPIDOGREL [Suspect]
     Active Substance: CLOPIDOGREL BISULFATE
     Indication: STENT PLACEMENT
     Dosage: 1 TABLET A DAY MORNING
     Route: 065
     Dates: start: 20180419

REACTIONS (6)
  - Pulmonary congestion [Not Recovered/Not Resolved]
  - Product substitution issue [Unknown]
  - Dyspnoea [Not Recovered/Not Resolved]
  - Hypertension [Recovered/Resolved]
  - Peripheral swelling [Not Recovered/Not Resolved]
  - Tremor [Not Recovered/Not Resolved]
